FAERS Safety Report 20674516 (Version 1)
Quarter: 2022Q2

REPORT INFORMATION
  Report Type: Spontaneous
  Country: DE (occurrence: DE)
  Receive Date: 20220405
  Receipt Date: 20220405
  Transmission Date: 20220721
  Serious: Yes (Other)
  Sender: FDA-Public Use
  Company Number: None

PATIENT

DRUGS (4)
  1. XCOPRI [Suspect]
     Active Substance: CENOBAMATE
     Indication: Epilepsy
     Dosage: 0-0-1
     Route: 048
     Dates: start: 202110
  2. QUETIAPINE [Concomitant]
     Active Substance: QUETIAPINE
     Indication: Nightmare
     Dosage: 0-0-2
     Route: 065
     Dates: start: 202112
  3. VIMPAT [Concomitant]
     Active Substance: LACOSAMIDE
     Indication: Epilepsy
     Dosage: 300 MG-0-300 MG, EINNAHME SEIT CA. 10 JAHREN
     Route: 065
  4. PHENOBARBITAL SODIUM [Concomitant]
     Active Substance: PHENOBARBITAL SODIUM
     Indication: Epilepsy
     Dosage: 0-0-1
     Route: 065
     Dates: start: 2013

REACTIONS (9)
  - Seizure [Unknown]
  - Condition aggravated [Unknown]
  - Dyspnoea [Unknown]
  - Nightmare [Unknown]
  - Exaggerated startle response [Unknown]
  - Tremor [Unknown]
  - Dyspepsia [Unknown]
  - Aggression [Unknown]
  - Memory impairment [Unknown]
